FAERS Safety Report 20340689 (Version 1)
Quarter: 2022Q1

REPORT INFORMATION
  Report Type: Report from Study
  Country: US (occurrence: US)
  Receive Date: 20220117
  Receipt Date: 20220117
  Transmission Date: 20220423
  Serious: No
  Sender: FDA-Public Use
  Company Number: US-BEH-2022140617

PATIENT
  Age: 61 Year
  Sex: Male
  Weight: 151.02 kg

DRUGS (7)
  1. HIZENTRA [Suspect]
     Active Substance: HUMAN IMMUNOGLOBULIN G
     Indication: Chronic inflammatory demyelinating polyradiculoneuropathy
     Dosage: 58 GRAM, QW
     Route: 058
     Dates: start: 20220107
  2. HIZENTRA [Suspect]
     Active Substance: HUMAN IMMUNOGLOBULIN G
     Dosage: 58 GRAM, QW
     Route: 058
     Dates: start: 20210616
  3. BENADRYL [Concomitant]
     Active Substance: DIPHENHYDRAMINE HYDROCHLORIDE
     Indication: Premedication
  4. BENADRYL [Concomitant]
     Active Substance: DIPHENHYDRAMINE HYDROCHLORIDE
     Indication: Premedication
  5. ASPIRIN [Concomitant]
     Active Substance: ASPIRIN
     Indication: Premedication
  6. ASPIRIN [Concomitant]
     Active Substance: ASPIRIN
     Indication: Premedication
  7. MYCOPHENOLATE MOFETIL [Concomitant]
     Active Substance: MYCOPHENOLATE MOFETIL

REACTIONS (4)
  - Infusion site erythema [Recovering/Resolving]
  - Recalled product administered [Recovering/Resolving]
  - Infusion site inflammation [Recovering/Resolving]
  - Recalled product administered [Recovering/Resolving]

NARRATIVE: CASE EVENT DATE: 20220107
